FAERS Safety Report 9016082 (Version 1)
Quarter: 2013Q1

REPORT INFORMATION
  Report Type: Report from Study
  Country: AU (occurrence: AU)
  Receive Date: 20130116
  Receipt Date: 20130116
  Transmission Date: 20140127
  Serious: Yes (Hospitalization)
  Sender: FDA-Public Use
  Company Number: PHHO2013AU000725

PATIENT
  Age: 60 Year
  Sex: Male
  Weight: 66 kg

DRUGS (10)
  1. METOPROLOL [Suspect]
     Indication: MYOCARDIAL ISCHAEMIA
     Dosage: UNK
  2. METOPROLOL [Suspect]
     Dosage: 25 MG, BID
     Dates: end: 20130101
  3. BLINDED GP2013 [Suspect]
     Indication: NON-HODGKIN^S LYMPHOMA
     Dosage: CODE NOT BROKEN
     Route: 042
     Dates: start: 20120928
  4. MABTHERA [Suspect]
     Indication: NON-HODGKIN^S LYMPHOMA
     Dosage: CODE NOT BROKEN
     Route: 042
     Dates: start: 20120928
  5. BLINDED NO TREATMENT RECEIVED [Suspect]
     Indication: NON-HODGKIN^S LYMPHOMA
     Dosage: CODE NOT BROKEN
     Route: 042
     Dates: start: 20120928
  6. CYCLOPHOSPHAMIDE [Concomitant]
     Indication: CHEMOTHERAPY
     Dosage: 1610 MG, QW3
     Route: 042
     Dates: start: 20120928
  7. VINCRISTINE [Concomitant]
     Indication: CHEMOTHERAPY
     Dosage: 2 MG, QW3
     Route: 042
     Dates: start: 20120928
  8. PREDNISONE [Concomitant]
     Indication: CHEMOTHERAPY
     Dosage: 100 MG, QD, Q3W DND5
     Route: 048
     Dates: start: 20120928
  9. PLAVIX [Concomitant]
     Indication: MYOCARDIAL ISCHAEMIA
     Dosage: UNK
     Dates: end: 20130101
  10. ASPIRIN [Concomitant]
     Indication: MYOCARDIAL ISCHAEMIA
     Dosage: UNK
     Dates: end: 20130101

REACTIONS (1)
  - Syncope [Recovered/Resolved]
